FAERS Safety Report 7852619-3 (Version None)
Quarter: 2011Q4

REPORT INFORMATION
  Report Type: 
  Country: None (occurrence: None)
  Receive Date: 20111026
  Receipt Date: 20111018
  Transmission Date: 20120403
  Serious: Yes (Congenital Anomaly)
  Sender: FDA-Public Use
  Company Number: US-GLAXOSMITHKLINE-A0950313A

PATIENT
  Sex: Male

DRUGS (1)
  1. PAROXETINE HCL [Suspect]
     Indication: PRODUCT USED FOR UNKNOWN INDICATION
     Dosage: 40MG UNKNOWN

REACTIONS (4)
  - BICUSPID AORTIC VALVE [None]
  - MATERNAL EXPOSURE DURING PREGNANCY [None]
  - COARCTATION OF THE AORTA [None]
  - INTESTINAL MALROTATION [None]
